FAERS Safety Report 25226824 (Version 1)
Quarter: 2025Q2

REPORT INFORMATION
  Report Type: Spontaneous
  Country: US (occurrence: None)
  Receive Date: 20250422
  Receipt Date: 20250422
  Transmission Date: 20250717
  Serious: Yes (Hospitalization)
  Sender: FDA-CTU
  Company Number: None

PATIENT
  Age: 41 Year
  Sex: Female

DRUGS (1)
  1. BICILLIN [Suspect]
     Active Substance: PENICILLIN G BENZATHINE
     Route: 030

REACTIONS (2)
  - Circumstance or information capable of leading to medication error [None]
  - Wrong product administered [None]

NARRATIVE: CASE EVENT DATE: 20250310
